FAERS Safety Report 24296717 (Version 3)
Quarter: 2025Q3

REPORT INFORMATION
  Report Type: Spontaneous
  Country: EU (occurrence: EU)
  Receive Date: 20240909
  Receipt Date: 20250827
  Transmission Date: 20251020
  Serious: Yes (Other)
  Sender: AMGEN
  Company Number: EU-002147023-NVSC2024IE177878

PATIENT
  Age: 50 Year
  Sex: Female

DRUGS (20)
  1. ERENUMAB [Suspect]
     Active Substance: ERENUMAB
     Indication: Migraine
     Dosage: UNK, Q4W (INJECTED EVERY FOUR WEEKS SUBCUTANEOUSLY
     Route: 058
     Dates: start: 202308
  2. MIRTAZAPINE [Suspect]
     Active Substance: MIRTAZAPINE
     Indication: Migraine
     Dosage: 15 MILLIGRAM, 1/DAY
     Route: 065
  3. MIRTAZAPINE [Suspect]
     Active Substance: MIRTAZAPINE
     Indication: Sleep disorder
     Dosage: 15 MILLIGRAM, 1/DAY
     Route: 065
  4. MIRTAZAPINE [Suspect]
     Active Substance: MIRTAZAPINE
     Indication: Affective disorder
     Dosage: 15 MILLIGRAM, 1/DAY/ONGOING, FOR FOUR YEARS
     Route: 065
     Dates: start: 2016
  5. PROPRANOLOL [Suspect]
     Active Substance: PROPRANOLOL HYDROCHLORIDE
     Indication: Hypotension
     Route: 065
  6. PROPRANOLOL [Suspect]
     Active Substance: PROPRANOLOL HYDROCHLORIDE
     Indication: Migraine prophylaxis
     Route: 048
     Dates: start: 2023
  7. ZOMIG [Interacting]
     Active Substance: ZOLMITRIPTAN
     Indication: Migraine
     Route: 065
     Dates: start: 202308
  8. RIMEGEPANT [Interacting]
     Active Substance: RIMEGEPANT
     Indication: Migraine
     Dosage: 75 MG, QD (UP TO 10 DAYS A MONTH)
     Route: 048
     Dates: start: 202308
  9. CANDESARTAN [Suspect]
     Active Substance: CANDESARTAN
     Indication: Hypotension
     Route: 065
  10. CANDESARTAN [Suspect]
     Active Substance: CANDESARTAN
     Indication: Migraine prophylaxis
     Route: 065
  11. CANDESARTAN [Suspect]
     Active Substance: CANDESARTAN
     Dosage: 16 MILLIGRAM, 1/DAY
     Route: 065
  12. CANDESARTAN [Suspect]
     Active Substance: CANDESARTAN
     Dosage: 16 MILLIGRAM, 1/DAY
     Route: 065
  13. CANDESARTAN [Suspect]
     Active Substance: CANDESARTAN
     Route: 065
     Dates: start: 2020
  14. AMITRIPTYLINE [Suspect]
     Active Substance: AMITRIPTYLINE
     Indication: Migraine prophylaxis
     Dosage: 75 MILLIGRAM, 1/DAY
     Route: 065
  15. AMITRIPTYLINE [Suspect]
     Active Substance: AMITRIPTYLINE
     Dosage: 75 MILLIGRAM, 1/DAY
     Route: 065
  16. AMITRIPTYLINE [Suspect]
     Active Substance: AMITRIPTYLINE
     Route: 065
     Dates: start: 2022
  17. MOTILIUM [Suspect]
     Active Substance: DOMPERIDONE
     Indication: Migraine
     Route: 065
  18. MOTILIUM [Suspect]
     Active Substance: DOMPERIDONE
     Route: 065
  19. IXPRIM [Concomitant]
     Active Substance: ACETAMINOPHEN\TRAMADOL HYDROCHLORIDE
     Indication: Migraine
     Route: 065
  20. BOTOX [Concomitant]
     Active Substance: ONABOTULINUMTOXINA
     Indication: Migraine
     Route: 065
     Dates: start: 2023

REACTIONS (6)
  - Arteriospasm coronary [Unknown]
  - Unmasking of previously unidentified disease [Unknown]
  - Drug interaction [Unknown]
  - Migraine [Unknown]
  - Disease progression [Unknown]
  - Drug ineffective [Unknown]

NARRATIVE: CASE EVENT DATE: 20240101
